FAERS Safety Report 17031534 (Version 1)
Quarter: 2019Q4

REPORT INFORMATION
  Report Type: Spontaneous
  Country: US (occurrence: US)
  Receive Date: 20191013
  Receipt Date: 20191013
  Transmission Date: 20200122
  Serious: No
  Sender: FDA-Public Use
  Company Number: None

PATIENT
  Sex: Female

DRUGS (1)
  1. IBRANCE [Suspect]
     Active Substance: PALBOCICLIB
     Indication: BREAST CANCER
     Dosage: ?          OTHER FREQUENCY:14 DAYSON/7DAYS OF;?
     Route: 048
     Dates: start: 20190320

REACTIONS (5)
  - Drug ineffective [None]
  - Haematochezia [None]
  - Abdominal pain upper [None]
  - Abdominal distension [None]
  - Unevaluable event [None]
